FAERS Safety Report 6924164-0 (Version None)
Quarter: 2010Q3

REPORT INFORMATION
  Report Type: 
  Country: None (occurrence: None)
  Receive Date: 20100812
  Receipt Date: 20100812
  Transmission Date: 20110219
  Serious: Yes (Hospitalization)
  Sender: FDA-Public Use
  Company Number: None

PATIENT
  Age: 64 Year
  Sex: Female
  Weight: 77.1115 kg

DRUGS (8)
  1. DIPHENHYDRAMINE LIQUID FILLED CA 50 MG TARGET UP + UP SLEEP AID [Suspect]
     Dosage: 100 MG ONCE AT BEDTIME PO
     Route: 048
     Dates: start: 20100622, end: 20100630
  2. TEMAZEPAM [Concomitant]
  3. LORAZEPAM [Concomitant]
  4. DIVALPROEX SODIUM [Concomitant]
  5. THORAZINE [Concomitant]
  6. POTASSIUM [Concomitant]
  7. FUROZEMIDE [Concomitant]
  8. PREDNIZONE [Concomitant]

REACTIONS (7)
  - BLOOD PRESSURE SYSTOLIC INCREASED [None]
  - DRUG HYPERSENSITIVITY [None]
  - INSOMNIA [None]
  - MANIA [None]
  - SWOLLEN TONGUE [None]
  - TONGUE DISORDER [None]
  - TONGUE ULCERATION [None]
